FAERS Safety Report 6445695-6 (Version None)
Quarter: 2009Q4

REPORT INFORMATION
  Report Type: 
  Country: None (occurrence: None)
  Receive Date: 20091118
  Receipt Date: 20091118
  Transmission Date: 20100525
  Serious: Yes (Other)
  Sender: FDA-Public Use
  Company Number: None

PATIENT
  Sex: Female
  Weight: 84.1 kg

DRUGS (4)
  1. OLANZAPINE [Suspect]
     Indication: SCHIZOPHRENIA
     Dosage: 25 MG DAILY ORAL
     Route: 048
     Dates: start: 20090901
  2. BUPROPION HCL [Concomitant]
  3. METFORMIN HCL [Concomitant]
  4. GLYBURIDE [Concomitant]

REACTIONS (5)
  - ANGER [None]
  - DEPRESSION [None]
  - PRODUCT SUBSTITUTION ISSUE [None]
  - PSYCHOTIC DISORDER [None]
  - SUICIDAL IDEATION [None]
